FAERS Safety Report 9273115 (Version 1)
Quarter: 2013Q2

REPORT INFORMATION
  Report Type: Spontaneous
  Country: US (occurrence: US)
  Receive Date: 20130506
  Receipt Date: 20130506
  Transmission Date: 20140414
  Serious: No
  Sender: FDA-Public Use
  Company Number: US-AMGEN-USASP2013018806

PATIENT
  Age: 48 Year
  Sex: Female
  Weight: 61.22 kg

DRUGS (5)
  1. ENBREL [Suspect]
     Indication: PSORIASIS
     Dosage: 50 MG, QWK
     Dates: start: 20130206
  2. ENBREL [Suspect]
     Indication: PSORIATIC ARTHROPATHY
  3. NAPRELAN [Concomitant]
     Indication: INFLAMMATION
     Dosage: 750 MG, QD
     Route: 048
     Dates: start: 20110423
  4. METHOTREXATE [Concomitant]
     Indication: PSORIATIC ARTHROPATHY
     Dosage: 125 MG, QWK
     Route: 048
     Dates: start: 20130324
  5. CELEXA                             /00582602/ [Concomitant]
     Indication: MENTAL DISORDER
     Dosage: UNK UNK, QD
     Route: 048

REACTIONS (5)
  - Rash erythematous [Not Recovered/Not Resolved]
  - Burning sensation [Not Recovered/Not Resolved]
  - Drug effect incomplete [Not Recovered/Not Resolved]
  - Pain [Not Recovered/Not Resolved]
  - Psoriasis [Not Recovered/Not Resolved]
